FAERS Safety Report 15570473 (Version 1)
Quarter: 2018Q4

REPORT INFORMATION
  Report Type: Spontaneous
  Country: CH (occurrence: CH)
  Receive Date: 20181031
  Receipt Date: 20181031
  Transmission Date: 20190205
  Serious: Yes (Hospitalization)
  Sender: FDA-Public Use
  Company Number: CH-JNJFOC-20181041703

PATIENT
  Age: 73 Year
  Sex: Male
  Weight: 114 kg

DRUGS (14)
  1. ATORVASTATIN [Concomitant]
     Active Substance: ATORVASTATIN
     Route: 065
  2. PRADIF T [Concomitant]
     Active Substance: TAMSULOSIN HYDROCHLORIDE
     Route: 065
  3. FESOTERODINE [Concomitant]
     Active Substance: FESOTERODINE
     Route: 065
  4. ASPIRIN CARDIO [Suspect]
     Active Substance: ASPIRIN
     Indication: ARTERIOSCLEROSIS CORONARY ARTERY
     Route: 048
     Dates: end: 20180803
  5. OPSUMIT [Concomitant]
     Active Substance: MACITENTAN
     Route: 065
  6. TRAJENTA [Concomitant]
     Active Substance: LINAGLIPTIN
     Route: 065
  7. SPIRICORT [Suspect]
     Active Substance: PREDNISOLONE
     Indication: PRODUCT USED FOR UNKNOWN INDICATION
     Route: 065
     Dates: start: 20180805
  8. SILDENAFIL. [Concomitant]
     Active Substance: SILDENAFIL
     Route: 065
  9. PANTOZOL [Concomitant]
     Active Substance: PANTOPRAZOLE SODIUM
     Route: 065
  10. XARELTO [Suspect]
     Active Substance: RIVAROXABAN
     Indication: EVIDENCE BASED TREATMENT
     Route: 048
     Dates: start: 20180705, end: 20180803
  11. SPIRICORT [Suspect]
     Active Substance: PREDNISOLONE
     Indication: PRODUCT USED FOR UNKNOWN INDICATION
     Route: 065
     Dates: end: 20180803
  12. ATACAND [Concomitant]
     Active Substance: CANDESARTAN CILEXETIL
     Route: 065
  13. ASPIRIN CARDIO [Suspect]
     Active Substance: ASPIRIN
     Indication: ARTERIOSCLEROSIS CORONARY ARTERY
     Route: 048
     Dates: start: 20180813
  14. DILZEM [Suspect]
     Active Substance: DILTIAZEM
     Indication: PRODUCT USED FOR UNKNOWN INDICATION
     Route: 065

REACTIONS (4)
  - Potentiating drug interaction [Recovered/Resolved]
  - Product prescribing error [Recovered/Resolved]
  - Gastrointestinal haemorrhage [Recovered/Resolved]
  - Haemorrhagic anaemia [Recovering/Resolving]

NARRATIVE: CASE EVENT DATE: 201807
